FAERS Safety Report 8689285 (Version 3)
Quarter: 2013Q1

REPORT INFORMATION
  Report Type: Spontaneous
  Country: US (occurrence: US)
  Receive Date: 20120727
  Receipt Date: 20130301
  Transmission Date: 20140127
  Serious: No
  Sender: FDA-Public Use
  Company Number: US-ASTRAZENECA-2011SE76162

PATIENT
  Age: 56 Year
  Sex: Male

DRUGS (4)
  1. SEROQUEL [Suspect]
     Route: 048
  2. NEXIUM [Concomitant]
  3. TOPROL XL [Concomitant]
  4. CRESTOR [Concomitant]

REACTIONS (4)
  - Anxiety [Unknown]
  - Insomnia [Unknown]
  - Irritability [Unknown]
  - Drug dose omission [Unknown]
